FAERS Safety Report 4264546-1 (Version None)
Quarter: 2004Q1

REPORT INFORMATION
  Report Type: 
  Country: None (occurrence: None)
  Receive Date: 20040102
  Receipt Date: 20031212
  Transmission Date: 20041129
  Serious: Yes (Hospitalization, Other)
  Sender: FDA-Public Use
  Company Number: 20031200126

PATIENT
  Age: 15 Day

DRUGS (1)
  1. LORAZEPAM [Suspect]
     Indication: INJURY

REACTIONS (2)
  - COMA [None]
  - MEDICATION ERROR [None]
